FAERS Safety Report 14337360 (Version 1)
Quarter: 2017Q4

REPORT INFORMATION
  Report Type: Spontaneous
  Country: US (occurrence: US)
  Receive Date: 20171229
  Receipt Date: 20171229
  Transmission Date: 20180321
  Serious: No
  Sender: FDA-Public Use
  Company Number: PHEH2017US041219

PATIENT
  Sex: Male
  Weight: 69.39 kg

DRUGS (3)
  1. AMOXICILLIN AND CLAVULANATE POTASSIUM [Suspect]
     Active Substance: AMOXICILLIN\CLAVULANATE POTASSIUM
     Indication: OTITIS MEDIA
     Dosage: 1 DF, BID
     Route: 048
     Dates: start: 20171208
  2. ZOLPIDEM [Suspect]
     Active Substance: ZOLPIDEM\ZOLPIDEM TARTRATE
     Indication: SLEEP DISORDER
     Dosage: 0.5 DF, PRN
     Route: 065
  3. AMOXICILLIN AND CLAVULANATE POTASSIUM TABLETS USP [Suspect]
     Active Substance: AMOXICILLIN\CLAVULANATE POTASSIUM
     Indication: OTITIS MEDIA
     Dosage: 1 DF, BID
     Route: 048

REACTIONS (4)
  - Ear disorder [Not Recovered/Not Resolved]
  - Hearing disability [Not Recovered/Not Resolved]
  - Drug ineffective [Unknown]
  - Tinnitus [Not Recovered/Not Resolved]
